FAERS Safety Report 21080058 (Version 1)
Quarter: 2022Q3

REPORT INFORMATION
  Report Type: Other
  Country: DE (occurrence: DE)
  Receive Date: 20220714
  Receipt Date: 20220714
  Transmission Date: 20221027
  Serious: Yes (Other)
  Sender: FDA-Public Use
  Company Number: DE-CELLTRION INC.-2022DE010802

PATIENT

DRUGS (5)
  1. RITUXIMAB [Suspect]
     Active Substance: RITUXIMAB
     Indication: Diffuse large B-cell lymphoma
     Dosage: SECOND LINE WITH GEM-OX, 4 CYCLES
  2. RITUXIMAB [Suspect]
     Active Substance: RITUXIMAB
     Dosage: FIRST LINE RITUXIMAB ONLY, 2 CYCLES
  3. RITUXIMAB [Suspect]
     Active Substance: RITUXIMAB
     Dosage: FIRST LINE WITH CHOP, 6 CYCLES
  4. GEMFIBROZIL [Suspect]
     Active Substance: GEMFIBROZIL
     Indication: Diffuse large B-cell lymphoma
     Dosage: SECOND LINE WITH RITUXIMAB, 4 CYCLES
  5. CYCLOPHOSPHAMIDE\DOXORUBICIN\PREDNISONE\VINCRISTINE [Suspect]
     Active Substance: CYCLOPHOSPHAMIDE\DOXORUBICIN\PREDNISONE\VINCRISTINE
     Indication: Diffuse large B-cell lymphoma
     Dosage: FIRST LINE WITH RITUXIMAB, 6 CYCLES

REACTIONS (7)
  - Ascites [Unknown]
  - Disease progression [Unknown]
  - Dementia [Unknown]
  - Thrombocytopenia [Unknown]
  - Leukopenia [Unknown]
  - General physical health deterioration [Unknown]
  - Blood lactate dehydrogenase increased [Unknown]

NARRATIVE: CASE EVENT DATE: 20181001
